FAERS Safety Report 6707222-5 (Version None)
Quarter: 2010Q2

REPORT INFORMATION
  Report Type: 
  Country: None (occurrence: None)
  Receive Date: 20100503
  Receipt Date: 20090713
  Transmission Date: 20101027
  Serious: No
  Sender: FDA-Public Use
  Company Number: US-ASTRAZENECA-2009UW11824

PATIENT
  Sex: Female
  Weight: 95.3 kg

DRUGS (1)
  1. NEXIUM [Suspect]
     Indication: ULCER
     Route: 048

REACTIONS (3)
  - ABDOMINAL PAIN [None]
  - DIARRHOEA [None]
  - JOB DISSATISFACTION [None]
